FAERS Safety Report 12257288 (Version 1)
Quarter: 2016Q2

REPORT INFORMATION
  Report Type: Spontaneous
  Country: US (occurrence: None)
  Receive Date: 20160411
  Receipt Date: 20160411
  Transmission Date: 20160815
  Serious: Yes (Life-Threatening, Disabling)
  Sender: FDA-Public Use
  Company Number: None

PATIENT
  Age: 41 Year
  Sex: Female
  Weight: 117.94 kg

DRUGS (3)
  1. PREDNISONE. [Concomitant]
     Active Substance: PREDNISONE
  2. COPAXONE [Suspect]
     Active Substance: GLATIRAMER ACETATE
     Indication: MULTIPLE SCLEROSIS
     Dosage: 1 INJECTION 3X A WEEK OR 3 INJECTIONS PER WEEK M, W, F, INJECTION
     Dates: start: 20160105, end: 20160305
  3. TYLENOL [Concomitant]
     Active Substance: ACETAMINOPHEN

REACTIONS (6)
  - Amnesia [None]
  - Aphasia [None]
  - Loss of consciousness [None]
  - Dysgraphia [None]
  - Mouth haemorrhage [None]
  - Seizure [None]

NARRATIVE: CASE EVENT DATE: 20160201
